FAERS Safety Report 6153677-7 (Version None)
Quarter: 2009Q2

REPORT INFORMATION
  Report Type: 
  Country: None (occurrence: None)
  Receive Date: 20090413
  Receipt Date: 20090403
  Transmission Date: 20091009
  Serious: Yes (Hospitalization)
  Sender: FDA-Public Use
  Company Number: FR-JNJCH-2009009958

PATIENT
  Sex: Female

DRUGS (1)
  1. SUDAFED 12 HOUR [Suspect]
     Indication: INFLUENZA
     Dosage: TEXT:2 TABLET
     Route: 048
     Dates: start: 20090222, end: 20090224

REACTIONS (5)
  - HALLUCINATION [None]
  - INFLAMMATION [None]
  - NECROSIS ISCHAEMIC [None]
  - PAIN [None]
  - VAGINAL LESION [None]
